FAERS Safety Report 12127421 (Version 2)
Quarter: 2016Q2

REPORT INFORMATION
  Report Type: Spontaneous
  Country: SG (occurrence: SG)
  Receive Date: 20160229
  Receipt Date: 20160412
  Transmission Date: 20160815
  Serious: Yes (Hospitalization, Other)
  Sender: FDA-Public Use
  Company Number: SG-WATSON-2016-04384

PATIENT
  Age: 31 Week
  Sex: Female
  Weight: 1.91 kg

DRUGS (1)
  1. DIAZEPAM (UNKNOWN) [Suspect]
     Active Substance: DIAZEPAM
     Indication: PRODUCT USED FOR UNKNOWN INDICATION
     Dosage: UNK
     Route: 064

REACTIONS (4)
  - Foetal exposure during pregnancy [Unknown]
  - Respiratory distress [Unknown]
  - Neurodevelopmental disorder [Unknown]
  - Haemorrhage intracranial [Unknown]
